FAERS Safety Report 6201096-7 (Version None)
Quarter: 2009Q2

REPORT INFORMATION
  Report Type: 
  Country: None (occurrence: None)
  Receive Date: 20090526
  Receipt Date: 20090518
  Transmission Date: 20091009
  Serious: Yes (Hospitalization, Other)
  Sender: FDA-Public Use
  Company Number: US-ASTRAZENECA-2009UW12831

PATIENT
  Age: 67 Year
  Sex: Male
  Weight: 87.1 kg

DRUGS (12)
  1. TOPROL-XL [Suspect]
     Route: 048
  2. CRESTOR [Suspect]
     Route: 048
  3. INSULIN [Concomitant]
  4. NITROGLYCERIN [Concomitant]
  5. ASPIRIN [Concomitant]
  6. PLAVIX [Concomitant]
  7. ZETIA [Concomitant]
  8. TOPAMAX [Concomitant]
  9. TRAMADOL HCL [Concomitant]
  10. OXYCODONE HCL [Concomitant]
  11. LABASE-OMEGA-3 [Concomitant]
  12. FUROSEMIDE [Concomitant]

REACTIONS (7)
  - ANGINA PECTORIS [None]
  - ANXIETY [None]
  - BACK PAIN [None]
  - CHEST PAIN [None]
  - DYSPNOEA [None]
  - PAIN IN EXTREMITY [None]
  - STENT PLACEMENT [None]
